FAERS Safety Report 5387909-X (Version None)
Quarter: 2007Q3

REPORT INFORMATION
  Report Type: 
  Country: None (occurrence: None)
  Receive Date: 20070716
  Receipt Date: 20060829
  Transmission Date: 20080115
  Serious: No
  Sender: FDA-Public Use
  Company Number: A0618220A

PATIENT
  Age: 41 Year
  Sex: Female

DRUGS (1)
  1. NICORETTE (MINT) [Suspect]
     Dates: start: 20060821, end: 20060821

REACTIONS (6)
  - CARDIAC FLUTTER [None]
  - DIZZINESS [None]
  - FEELING ABNORMAL [None]
  - MALAISE [None]
  - NERVOUSNESS [None]
  - TREMOR [None]
